FAERS Safety Report 5350430-9 (Version None)
Quarter: 2007Q2

REPORT INFORMATION
  Report Type: 
  Country: None (occurrence: None)
  Receive Date: 20070605
  Receipt Date: 20070605
  Transmission Date: 20071010
  Serious: Yes (Hospitalization)
  Sender: FDA-Public Use
  Company Number: None

PATIENT
  Age: 51 Year
  Sex: Female
  Weight: 92.0802 kg

DRUGS (14)
  1. AVASTIN [Suspect]
     Indication: BREAST CANCER
     Dosage: 1370 MG DAY 1 Q 3 WEEKS 041
     Dates: start: 20070402, end: 20070514
  2. XANAX [Concomitant]
  3. AVAPRO [Concomitant]
  4. SYNTHROID [Concomitant]
  5. PRILOSEC [Concomitant]
  6. PERCOCET [Concomitant]
  7. EFFEXOR [Concomitant]
  8. ZOFRAN [Concomitant]
  9. COMPAZINE [Concomitant]
  10. OXYCONTIN [Concomitant]
  11. CALCIUM SUPPLEMENT [Concomitant]
  12. TAXOTERE [Concomitant]
  13. XELODA [Concomitant]
  14. DECADRON [Concomitant]

REACTIONS (1)
  - CEREBROVASCULAR ACCIDENT [None]
